FAERS Safety Report 7142823-4 (Version None)
Quarter: 2010Q4

REPORT INFORMATION
  Report Type: 
  Country: None (occurrence: None)
  Receive Date: 20101207
  Receipt Date: 20101126
  Transmission Date: 20110411
  Serious: Yes (Hospitalization)
  Sender: FDA-Public Use
  Company Number: FR-PFIZER INC-FR-WYE-G02884209

PATIENT
  Age: 17 Year
  Sex: Female

DRUGS (4)
  1. IBUPROFEN [Suspect]
     Dosage: 1 DF, 3X/DAY
     Route: 048
     Dates: start: 20000823, end: 20000829
  2. CELESTONE [Suspect]
     Dosage: UNK
     Route: 048
     Dates: start: 20000825, end: 20000827
  3. ZINNAT [Suspect]
     Dosage: 250 MG, 4X/DAY
     Route: 048
     Dates: start: 20000825, end: 20000829
  4. ZITHROMAX [Suspect]
     Dosage: 250 MG, 1X/DAY
     Route: 048
     Dates: start: 20000823, end: 20000825

REACTIONS (1)
  - HEPATITIS CHOLESTATIC [None]
